FAERS Safety Report 5163147-0 (Version None)
Quarter: 2006Q4

REPORT INFORMATION
  Report Type: 
  Country: None (occurrence: None)
  Receive Date: 20061204
  Receipt Date: 20061122
  Transmission Date: 20070319
  Serious: Yes (Hospitalization)
  Sender: FDA-Public Use
  Company Number: FR-JNJFOC-20050504670

PATIENT
  Sex: Female

DRUGS (6)
  1. REMINYL [Suspect]
     Indication: DEMENTIA ALZHEIMER'S TYPE
     Route: 048
  2. PROZAC [Concomitant]
  3. ZOCOR [Concomitant]
  4. TANAKAN [Concomitant]
     Dosage: 1 DOSE = 1 TABLET
  5. ASPIRIN [Concomitant]
  6. ENDOTELON [Concomitant]

REACTIONS (2)
  - GOITRE [None]
  - WEIGHT DECREASED [None]
